FAERS Safety Report 11259767 (Version 1)
Quarter: 2015Q3

REPORT INFORMATION
  Report Type: Spontaneous
  Country: US (occurrence: None)
  Receive Date: 20150709
  Receipt Date: 20150709
  Transmission Date: 20151125
  Serious: Yes (Hospitalization)
  Sender: FDA-Public Use
  Company Number: None

PATIENT
  Age: 43 Year
  Sex: Male

DRUGS (3)
  1. CEFTRIAXONE. [Suspect]
     Active Substance: CEFTRIAXONE
     Indication: PYREXIA
     Dates: start: 20130725, end: 20130725
  2. CEFAZOLIN [Suspect]
     Active Substance: CEFAZOLIN
     Indication: PROPHYLAXIS
     Dates: start: 20130731, end: 20130731
  3. LEVOFLOXACIN. [Suspect]
     Active Substance: LEVOFLOXACIN
     Indication: PROPHYLAXIS
     Dates: start: 20130726, end: 20130726

REACTIONS (6)
  - Pruritus [None]
  - Decreased appetite [None]
  - Drug-induced liver injury [None]
  - Nausea [None]
  - Jaundice [None]
  - Weight decreased [None]

NARRATIVE: CASE EVENT DATE: 20130806
